FAERS Safety Report 12117793 (Version 3)
Quarter: 2016Q1

REPORT INFORMATION
  Report Type: Report from Study
  Country: ZA (occurrence: ZA)
  Receive Date: 20160226
  Receipt Date: 20160324
  Transmission Date: 20160526
  Serious: Yes (Hospitalization)
  Sender: FDA-Public Use
  Company Number: ZA-BIOGEN-2016BI00191650

PATIENT
  Age: 59 Year
  Sex: Male
  Weight: 67.8 kg

DRUGS (8)
  1. MIRAPEX [Concomitant]
     Active Substance: PRAMIPEXOLE DIHYDROCHLORIDE
     Indication: RESTLESS LEGS SYNDROME
     Route: 048
     Dates: start: 20110201
  2. INDOCID [Concomitant]
     Active Substance: INDOMETHACIN
     Indication: HAEMOPHILIC ARTHROPATHY
     Route: 048
     Dates: start: 20111128
  3. CIMETIDINE [Concomitant]
     Active Substance: CIMETIDINE
     Indication: GASTRITIS PROPHYLAXIS
     Route: 048
     Dates: start: 20111128
  4. REYATAZ [Concomitant]
     Active Substance: ATAZANAVIR SULFATE
     Indication: VIRAL INFECTION
     Route: 048
     Dates: start: 20110201
  5. NEXIUM [Concomitant]
     Active Substance: ESOMEPRAZOLE MAGNESIUM
     Indication: GASTRITIS
     Route: 048
     Dates: start: 20121212
  6. RIVOTRIL [Concomitant]
     Active Substance: CLONAZEPAM
     Indication: ANXIETY
     Dates: start: 20120702
  7. KIVEXA [Concomitant]
     Active Substance: ABACAVIR SULFATE\LAMIVUDINE
     Indication: VIRAL INFECTION
     Route: 048
     Dates: start: 20110201
  8. ANTIHEMOPHILIC FACTOR (RECOMBINANT), FC FUSION PROTEIN [Suspect]
     Active Substance: (1-743)-(1638-2332)-BLOOD-COAGULATION FACTOR VIII (SYNTHETIC HUMAN) FUSION PROTEIN WITH IMMUNOGLOBULIN G1 (SYNTHETIC HUMAN FC DOMAIN FRAGMENT), (1444-6^),(1447-9^)-BIS(DISULFIDE) WITH IMMUNOGLOBULIN G1 (SYNTHETIC HUMAN FC DOMAIN FRAGMENT)
     Indication: HAEMOPHILIA
     Route: 048
     Dates: start: 20120618

REACTIONS (1)
  - Knee arthroplasty [Recovered/Resolved with Sequelae]

NARRATIVE: CASE EVENT DATE: 20160217
